FAERS Safety Report 16752596 (Version 1)
Quarter: 2019Q3

REPORT INFORMATION
  Report Type: Spontaneous
  Country: US (occurrence: US)
  Receive Date: 20190828
  Receipt Date: 20190828
  Transmission Date: 20191005
  Serious: No
  Sender: FDA-Public Use
  Company Number: US-TEVA-2019-US-1100884

PATIENT
  Sex: Male
  Weight: 87 kg

DRUGS (2)
  1. RITALIN [Concomitant]
     Active Substance: METHYLPHENIDATE HYDROCHLORIDE
     Route: 065
  2. NUVIGIL [Suspect]
     Active Substance: ARMODAFINIL
     Indication: NARCOLEPSY
     Dosage: 250 MILLIGRAM DAILY; 250 MG ONCE DAILY AT 7:00 AM
     Route: 065

REACTIONS (1)
  - Therapeutic response prolonged [Unknown]
